FAERS Safety Report 5406062-7 (Version None)
Quarter: 2007Q3

REPORT INFORMATION
  Report Type: 
  Country: None (occurrence: None)
  Receive Date: 20070806
  Receipt Date: 20070801
  Transmission Date: 20080115
  Serious: Yes (Other)
  Sender: FDA-Public Use
  Company Number: B0481807A

PATIENT
  Age: 25 Year
  Sex: Female
  Weight: 56 kg

DRUGS (1)
  1. VALTREX [Suspect]
     Dosage: 1000MG PER DAY
     Route: 065
     Dates: start: 20070724, end: 20070728

REACTIONS (1)
  - GASTRIC ULCER [None]
